FAERS Safety Report 22292043 (Version 2)
Quarter: 2023Q2

REPORT INFORMATION
  Report Type: Spontaneous
  Country: AU (occurrence: AU)
  Receive Date: 20230508
  Receipt Date: 20230512
  Transmission Date: 20230721
  Serious: Yes (Other)
  Sender: FDA-Public Use
  Company Number: AU-JNJFOC-20230503159

PATIENT
  Age: 49 Year
  Sex: Male

DRUGS (5)
  1. SPRAVATO [Suspect]
     Active Substance: ESKETAMINE
     Indication: Major depression
  2. SPRAVATO [Suspect]
     Active Substance: ESKETAMINE
     Indication: Post-traumatic stress disorder
     Dosage: 27 TREATMENTS
  3. QUETIAPINE [Concomitant]
     Active Substance: QUETIAPINE
  4. MELATONIN [Concomitant]
     Active Substance: MELATONIN
  5. AGOMELATINE [Concomitant]
     Active Substance: AGOMELATINE

REACTIONS (3)
  - Suicidal ideation [Unknown]
  - Panic attack [Unknown]
  - Emotional distress [Unknown]
